FAERS Safety Report 14215764 (Version 2)
Quarter: 2018Q1

REPORT INFORMATION
  Report Type: Report from Study
  Country: DE (occurrence: DE)
  Receive Date: 20171122
  Receipt Date: 20180320
  Transmission Date: 20180508
  Serious: Yes (Life-Threatening, Hospitalization)
  Sender: FDA-Public Use
  Company Number: DE-ROCHE-1575965

PATIENT
  Age: 81 Year
  Sex: Male
  Weight: 72 kg

DRUGS (20)
  1. BEVACIZUMAB. [Suspect]
     Active Substance: BEVACIZUMAB
     Indication: COLORECTAL CANCER METASTATIC
     Route: 042
     Dates: start: 20140423
  2. BEVACIZUMAB. [Suspect]
     Active Substance: BEVACIZUMAB
     Route: 042
     Dates: start: 20150325, end: 20150414
  3. 5-FLUOROURACIL [Concomitant]
     Active Substance: FLUOROURACIL
     Indication: COLORECTAL CANCER
     Dosage: DATE OF LAST DOSE PRIOR TO EVENT- 10/SEP/2014
     Route: 040
     Dates: start: 20140408
  4. FOLINIC ACID [Concomitant]
     Active Substance: LEUCOVORIN
     Indication: COLORECTAL CANCER
     Dosage: DATE OF LAST DOSE PRIOR TO EVENT- 10/SEP/2014
     Route: 042
     Dates: start: 20140408
  5. OXALIPLATIN. [Concomitant]
     Active Substance: OXALIPLATIN
     Indication: COLORECTAL CANCER
     Dosage: DATE OF LAST DOSE PRIOR TO EVENT- 10/SEP/2014
     Route: 042
     Dates: start: 20140408
  6. XELODA [Suspect]
     Active Substance: CAPECITABINE
     Dosage: DAILY FOR TWO WEEKS FOLLOWED BY A WEEK PAUSE
     Route: 048
     Dates: start: 20150105, end: 20150119
  7. XELODA [Suspect]
     Active Substance: CAPECITABINE
     Dosage: DAILY FOR TWO WEEKS FOLLOWED BY A WEEK PAUSE
     Route: 048
     Dates: start: 20150303, end: 20150316
  8. XELODA [Suspect]
     Active Substance: CAPECITABINE
     Dosage: DAILY FOR TWO WEEKS FOLLOWED BY A WEEK PAUSE
     Route: 048
     Dates: start: 20141030, end: 20141112
  9. AMLODIPIN [Concomitant]
     Active Substance: AMLODIPINE BESYLATE
     Indication: HYPERTENSION
     Route: 048
     Dates: start: 20140521
  10. LOPEDIUM [Concomitant]
     Active Substance: LOPERAMIDE
     Indication: DIARRHOEA
     Dosage: AS REQUIRED
     Route: 048
     Dates: start: 20140423
  11. XELODA [Suspect]
     Active Substance: CAPECITABINE
     Indication: COLORECTAL CANCER
     Dosage: DAILY FOR TWO WEEKS FOLLOWED BY A WEEK PAUSE
     Route: 048
     Dates: start: 20141009, end: 20141022
  12. XELODA [Suspect]
     Active Substance: CAPECITABINE
     Dosage: DAILY FOR TWO WEEKS FOLLOWED BY A WEEK PAUSE
     Route: 048
     Dates: start: 20150122
  13. XELODA [Suspect]
     Active Substance: CAPECITABINE
     Dosage: DAILY FOR TWO WEEKS FOLLOWED BY A WEEK PAUSE
     Route: 048
     Dates: start: 20150325, end: 20150414
  14. 5-FLUOROURACIL [Concomitant]
     Active Substance: FLUOROURACIL
     Dosage: DATE OF LAST DOSE PRIOR TO EVENT- 12/SEP/2014
     Route: 041
     Dates: start: 20140408
  15. XELODA [Suspect]
     Active Substance: CAPECITABINE
     Dosage: DAILY FOR TWO WEEKS FOLLOWED BY A WEEK PAUSE
     Route: 048
     Dates: start: 20141211, end: 20141224
  16. XELODA [Suspect]
     Active Substance: CAPECITABINE
     Dosage: DAILY FOR TWO WEEKS FOLLOWED BY A WEEK PAUSE
     Route: 048
     Dates: start: 20150212, end: 20150225
  17. XELODA [Suspect]
     Active Substance: CAPECITABINE
     Dosage: DAILY FOR TWO WEEKS FOLLOWED BY A WEEK PAUSE
     Route: 048
     Dates: start: 20150415, end: 20150505
  18. ARANESP [Suspect]
     Active Substance: DARBEPOETIN ALFA
     Indication: ANAEMIA OF MALIGNANT DISEASE
     Route: 058
     Dates: start: 20140408
  19. XELODA [Suspect]
     Active Substance: CAPECITABINE
     Dosage: DAILY FOR TWO WEEKS FOLLOWED BY A WEEK PAUSE
     Route: 048
     Dates: start: 20141120, end: 20141203
  20. NOVALGIN (METAMIZOLE SODIUM) [Concomitant]
     Active Substance: METAMIZOLE SODIUM
     Indication: ABDOMINAL PAIN LOWER
     Dosage: AS REQUIRED
     Route: 048
     Dates: start: 20141001

REACTIONS (2)
  - Subileus [Recovered/Resolved with Sequelae]
  - Large intestine perforation [Unknown]

NARRATIVE: CASE EVENT DATE: 20150507
